FAERS Safety Report 24274339 (Version 1)
Quarter: 2024Q3

REPORT INFORMATION
  Report Type: Spontaneous
  Country: CN (occurrence: CN)
  Receive Date: 20240902
  Receipt Date: 20240902
  Transmission Date: 20241017
  Serious: Yes (Other)
  Sender: NOVARTIS
  Company Number: CN-002147023-NVSC2024CN176343

PATIENT
  Age: 40 Year
  Sex: Female
  Weight: 48 kg

DRUGS (1)
  1. TOBRAMYCIN [Suspect]
     Active Substance: TOBRAMYCIN\TOBRAMYCIN SULFATE
     Indication: Conjunctivitis
     Dosage: 1 DRP, QID (EXTERNAL USE)
     Route: 065
     Dates: start: 20240824, end: 20240824

REACTIONS (4)
  - Endophthalmitis [Recovered/Resolved]
  - Eyelid oedema [Unknown]
  - Ocular hyperaemia [Unknown]
  - Ocular discomfort [Unknown]

NARRATIVE: CASE EVENT DATE: 20240824
